FAERS Safety Report 7354572-8 (Version None)
Quarter: 2011Q1

REPORT INFORMATION
  Report Type: 
  Country: None (occurrence: None)
  Receive Date: 20110316
  Receipt Date: 20110307
  Transmission Date: 20110831
  Serious: Yes (Hospitalization)
  Sender: FDA-Public Use
  Company Number: US-ELI_LILLY_AND_COMPANY-US201004006529

PATIENT
  Sex: Female

DRUGS (13)
  1. FORTEO [Suspect]
     Dosage: 20 UG, DAILY (1/D)
  2. MAGNESIUM [Concomitant]
  3. CETIRIZINE HCL [Concomitant]
  4. COUMADIN [Concomitant]
  5. POTASSIUM [Concomitant]
  6. VYTORIN [Concomitant]
  7. CITRACAL [Concomitant]
  8. FORTEO [Suspect]
     Indication: OSTEOPOROSIS
     Dosage: 20 UG, DAILY (1/D)
     Dates: start: 20090101
  9. FORTEO [Suspect]
     Dosage: 20 UG, DAILY (1/D)
  10. CENTRUM SILVER [Concomitant]
  11. METOPROLOL SUCCINATE [Concomitant]
  12. DIGOXIN [Concomitant]
  13. LEVOTHYROXINE SODIUM [Concomitant]

REACTIONS (3)
  - BLOOD DISORDER [None]
  - HAEMATOMA INFECTION [None]
  - HAEMATOMA [None]
